FAERS Safety Report 5717549-1 (Version None)
Quarter: 2008Q2

REPORT INFORMATION
  Report Type: 
  Country: None (occurrence: None)
  Receive Date: 20080425
  Receipt Date: 20080418
  Transmission Date: 20081010
  Serious: Yes (Disabling)
  Sender: FDA-Public Use
  Company Number: US-WYE-H03253508

PATIENT
  Sex: Male

DRUGS (5)
  1. EFFEXOR XR [Suspect]
     Indication: PANIC ATTACK
     Route: 065
     Dates: start: 20070101
  2. EFFEXOR XR [Suspect]
     Dosage: ^GRADUALLY WEANED OFF^
     Route: 065
     Dates: end: 20080310
  3. OXYCONTIN [Concomitant]
     Route: 065
     Dates: start: 20060101
  4. GEODON [Concomitant]
     Route: 065
     Dates: start: 20080318, end: 20080319
  5. PRILOSEC [Concomitant]
     Route: 065
     Dates: start: 20060101

REACTIONS (13)
  - ACTIVITIES OF DAILY LIVING IMPAIRED [None]
  - ARTHRALGIA [None]
  - ASTHENIA [None]
  - CHEST DISCOMFORT [None]
  - DIZZINESS [None]
  - DRUG WITHDRAWAL SYNDROME [None]
  - DYSPNOEA [None]
  - EAR PAIN [None]
  - FATIGUE [None]
  - MALAISE [None]
  - PAIN IN JAW [None]
  - THINKING ABNORMAL [None]
  - TINNITUS [None]
